FAERS Safety Report 6528283-2 (Version None)
Quarter: 2010Q1

REPORT INFORMATION
  Report Type: 
  Country: None (occurrence: None)
  Receive Date: 20100106
  Receipt Date: 20091219
  Transmission Date: 20100710
  Serious: Yes (Hospitalization)
  Sender: FDA-Public Use
  Company Number: PHHO2009FR15767

PATIENT
  Sex: Female

DRUGS (3)
  1. MYCOPHENOLATE MOFETIL [Suspect]
     Indication: HEART TRANSPLANT
     Dosage: OPEN LABEL
     Route: 048
     Dates: start: 20081024, end: 20091029
  2. MYCOPHENOLATE MOFETIL [Suspect]
     Dosage: OPEN LABEL
     Route: 048
     Dates: start: 20091104
  3. NEORAL [Suspect]
     Indication: HEART TRANSPLANT
     Dosage: OPEN LABEL
     Dates: start: 20081024

REACTIONS (1)
  - NEUTROPENIA [None]
